FAERS Safety Report 8580235-7 (Version None)
Quarter: 2012Q3

REPORT INFORMATION
  Report Type: 
  Country: None (occurrence: None)
  Receive Date: 20120808
  Receipt Date: 20070928
  Transmission Date: 20120928
  Serious: Yes (Death, Hospitalization, Other)
  Sender: FDA-Public Use
  Company Number: CO-PFIZER INC-2009270636

PATIENT
  Age: 64 Year
  Sex: Male

DRUGS (12)
  1. OLMESARTAN MEDOXOMIL AND HYDROCHLOROTHIZIDE [Suspect]
     Indication: DIABETES MELLITUS
  2. NORVASC [Suspect]
     Indication: HYPERTENSION
     Dosage: 10 MG, 1X/DAY
     Route: 048
     Dates: start: 20070303
  3. GLIBENCLAMIDE [Concomitant]
     Dosage: 5 MG, 1X/DAY
     Route: 048
  4. GLIBENCLAMIDE [Concomitant]
     Dosage: 5 MG, 2X/DAY
  5. QUINAPRIL AND HYDROCHLOROTHIAZIDE [Suspect]
     Indication: HYPERTENSION
     Dosage: [QUINAPRIL HCL 20 MG/ HYDROCHLOROTHIAZIDE 12.5 MG], 1X/DAY
  6. METFORMIN [Concomitant]
     Dosage: 850 MG, 2X/DAY
  7. LIPITOR [Suspect]
     Indication: HYPERTENSION
     Dosage: 10 MG, 1X/DAY
     Route: 048
     Dates: start: 20070303
  8. NORVASC [Suspect]
     Indication: DIABETES MELLITUS
     Dosage: 5 MG, 1X/DAY
  9. METOPROLOL TARTRATE [Concomitant]
     Dosage: 100 MG, 3X/DAY
  10. LIPITOR [Suspect]
     Indication: DIABETES MELLITUS
  11. INSULIN ZINC SUSPENSION [Concomitant]
     Dosage: 15 DF, 1X/DAY
  12. OLMESARTAN MEDOXOMIL AND HYDROCHLOROTHIZIDE [Suspect]
     Indication: HYPERTENSION
     Dosage: [OLMESARTAN MEDOXOMIL 20 MG/ HYDROCHLOROTHIAZIDE 12.5], 1X/DAY
     Route: 048
     Dates: start: 20070303

REACTIONS (9)
  - DEATH [None]
  - GASTROINTESTINAL FISTULA [None]
  - OEDEMA PERIPHERAL [None]
  - ANAEMIA [None]
  - EXERCISE LACK OF [None]
  - DYSPNOEA [None]
  - DIABETES MELLITUS INADEQUATE CONTROL [None]
  - CHEST PAIN [None]
  - DIARRHOEA [None]
